FAERS Safety Report 26098114 (Version 1)
Quarter: 2025Q4

REPORT INFORMATION
  Report Type: Report from Study
  Country: US (occurrence: US)
  Receive Date: 20251127
  Receipt Date: 20251127
  Transmission Date: 20260118
  Serious: Yes (Hospitalization)
  Sender: JAZZ
  Company Number: US-JAZZ PHARMACEUTICALS-2025-US-027157

PATIENT
  Sex: Male

DRUGS (4)
  1. EPIDIOLEX [Suspect]
     Active Substance: CANNABIDIOL
     Indication: Idiopathic generalised epilepsy
     Dosage: 3.5 MILLILITER, BID
     Dates: start: 202411
  2. EPIDIOLEX [Suspect]
     Active Substance: CANNABIDIOL
     Indication: Petit mal epilepsy
  3. LAMOTRIGINE [Concomitant]
     Active Substance: LAMOTRIGINE
     Indication: Product used for unknown indication
     Dosage: UNK
  4. ATIVAN [Concomitant]
     Active Substance: LORAZEPAM
     Indication: Product used for unknown indication
     Dosage: UNK

REACTIONS (5)
  - Hospitalisation [Unknown]
  - Haematochezia [Unknown]
  - Abdominal discomfort [Unknown]
  - Faecal calprotectin increased [Unknown]
  - Off label use [Unknown]
